FAERS Safety Report 4806598-3 (Version None)
Quarter: 2005Q4

REPORT INFORMATION
  Report Type: 
  Country: None (occurrence: None)
  Receive Date: 20051021
  Receipt Date: 20051014
  Transmission Date: 20060501
  Serious: Yes (Other)
  Sender: FDA-Public Use
  Company Number: 200517681US

PATIENT
  Sex: Female

DRUGS (3)
  1. LANTUS [Suspect]
     Dosage: DOSE: UNK
  2. GLYBURIDE [Concomitant]
     Dosage: DOSE: UNK
  3. NORMAL SALINE [Concomitant]
     Dosage: DOSE: UNK

REACTIONS (4)
  - HYPERGLYCAEMIA [None]
  - MUSCLE TIGHTNESS [None]
  - MYALGIA [None]
  - TETANY [None]
